FAERS Safety Report 16515596 (Version 1)
Quarter: 2020Q3

REPORT INFORMATION
  Report Type: Spontaneous
  Country: US (occurrence: US)
  Receive Date: 20190702
  Receipt Date: 20190702
  Transmission Date: 20201105
  Serious: No
  Sender: FDA-Public Use
  Company Number: None

PATIENT
  Age: 56 Year
  Sex: Female
  Weight: 152 kg

DRUGS (1)
  1. ERAVACYCLINE. [Suspect]
     Active Substance: ERAVACYCLINE
     Indication: OSTEOMYELITIS CHRONIC
     Route: 042
     Dates: start: 20190605, end: 20190628

REACTIONS (2)
  - Lipase increased [None]
  - Abdominal pain [None]

NARRATIVE: CASE EVENT DATE: 20190628
